FAERS Safety Report 8160538-0 (Version None)
Quarter: 2012Q1

REPORT INFORMATION
  Report Type: 
  Country: None (occurrence: None)
  Receive Date: 20120223
  Receipt Date: 20120213
  Transmission Date: 20120608
  Serious: Yes (Other)
  Sender: FDA-Public Use
  Company Number: FR-CUBIST-2012S1000126

PATIENT
  Age: 88 Year
  Sex: Male

DRUGS (8)
  1. CUBICIN [Suspect]
     Indication: STAPHYLOCOCCAL INFECTION
     Route: 042
  2. FOLIC ACID [Concomitant]
     Indication: PRODUCT USED FOR UNKNOWN INDICATION
     Dosage: DOSE UNIT:U UNKNOWN
     Route: 065
  3. ZOLPIDEM [Concomitant]
     Indication: PRODUCT USED FOR UNKNOWN INDICATION
     Dosage: DOSE UNIT:U UNKNOWN
     Route: 065
  4. LOXEN [Concomitant]
     Indication: HYPERTENSION
     Dosage: DOSE UNIT:U UNKNOWN
     Route: 065
  5. CALCIPARINE [Concomitant]
     Indication: PRODUCT USED FOR UNKNOWN INDICATION
     Dosage: DOSE UNIT:U UNKNOWN
     Route: 065
  6. ACETAMINOPHEN [Concomitant]
     Indication: PRODUCT USED FOR UNKNOWN INDICATION
     Dosage: DOSE UNIT:U UNKNOWN
     Route: 065
  7. CUBICIN [Suspect]
     Indication: INTERVERTEBRAL DISCITIS
     Route: 042
  8. IRBESARTAN [Concomitant]
     Indication: HYPERTENSION
     Dosage: DOSE UNIT:U UNKNOWN
     Route: 065

REACTIONS (3)
  - LUNG INFECTION [None]
  - HYPONATRAEMIA [None]
  - BLOOD CREATINE PHOSPHOKINASE INCREASED [None]
